FAERS Safety Report 6511930-9 (Version None)
Quarter: 2009Q4

REPORT INFORMATION
  Report Type: 
  Country: None (occurrence: None)
  Receive Date: 20091222
  Receipt Date: 20090616
  Transmission Date: 20100525
  Serious: No
  Sender: FDA-Public Use
  Company Number: US-ASTRAZENECA-2009UW15322

PATIENT
  Age: 49 Year
  Sex: Female
  Weight: 52.6 kg

DRUGS (4)
  1. CRESTOR [Suspect]
     Indication: BLOOD CHOLESTEROL INCREASED
     Route: 048
     Dates: start: 20090101
  2. CRESTOR [Suspect]
     Route: 048
  3. CALCIUM [Concomitant]
  4. VITAMIN D [Concomitant]

REACTIONS (3)
  - MUSCULAR WEAKNESS [None]
  - PAIN IN EXTREMITY [None]
  - VASCULAR STENOSIS [None]
